FAERS Safety Report 7998009-4 (Version None)
Quarter: 2011Q4

REPORT INFORMATION
  Report Type: 
  Country: None (occurrence: None)
  Receive Date: 20111221
  Receipt Date: 20101110
  Transmission Date: 20120403
  Serious: No
  Sender: FDA-Public Use
  Company Number: US-GLAXOSMITHKLINE-A0891843A

PATIENT
  Age: 49 Year
  Sex: Male
  Weight: 112.3 kg

DRUGS (4)
  1. QUINAPRIL [Concomitant]
  2. ASPIRIN [Concomitant]
  3. SIMVASTATIN [Concomitant]
  4. LOVAZA [Suspect]
     Indication: HYPERTENSION
     Dosage: 2CAP PER DAY
     Route: 048
     Dates: start: 20080101

REACTIONS (1)
  - GOUT [None]
